FAERS Safety Report 6061375-3 (Version None)
Quarter: 2009Q1

REPORT INFORMATION
  Report Type: 
  Country: None (occurrence: None)
  Receive Date: 20090128
  Receipt Date: 20090128
  Transmission Date: 20090719
  Serious: Yes (Other)
  Sender: FDA-Public Use
  Company Number: None

PATIENT
  Age: 18 Year
  Sex: Male
  Weight: 72.6 kg

DRUGS (1)
  1. OTRIVIN [Suspect]
     Indication: NASAL CONGESTION
     Dosage: 1 SPRAY, EACH NOSTRIL, ONCE/SINGLE, NASAL
     Route: 045
     Dates: start: 20090118, end: 20090118

REACTIONS (2)
  - AGEUSIA [None]
  - ANOSMIA [None]
